FAERS Safety Report 24927003 (Version 1)
Quarter: 2025Q1

REPORT INFORMATION
  Report Type: Spontaneous
  Country: US (occurrence: US)
  Receive Date: 20250205
  Receipt Date: 20250205
  Transmission Date: 20250409
  Serious: No
  Sender: VIIV
  Company Number: US-ViiV Healthcare-121197

PATIENT
  Sex: Female

DRUGS (1)
  1. DOVATO [Interacting]
     Active Substance: DOLUTEGRAVIR SODIUM\LAMIVUDINE
     Indication: Product used for unknown indication

REACTIONS (2)
  - Pathogen resistance [Unknown]
  - Labelled drug-drug interaction medication error [Unknown]
